FAERS Safety Report 25512444 (Version 2)
Quarter: 2025Q3

REPORT INFORMATION
  Report Type: Spontaneous
  Country: US (occurrence: US)
  Receive Date: 20250703
  Receipt Date: 20250710
  Transmission Date: 20251020
  Serious: Yes (Other)
  Sender: AURINIA PHARMACEUTICALS
  Company Number: US-OTSUKA PHARMACEUTICAL NETHERLANDS B.V.-AUR-008921

PATIENT
  Age: 43 Year
  Sex: Female

DRUGS (2)
  1. LUPKYNIS [Suspect]
     Active Substance: VOCLOSPORIN
     Indication: Lupus nephritis
     Dosage: 23.7 MILLIGRAM, BID
     Route: 048
     Dates: end: 202505
  2. LUPKYNIS [Suspect]
     Active Substance: VOCLOSPORIN
     Dosage: 3 CAPSULES BY MOUTH TWICE DAILY
     Route: 048

REACTIONS (3)
  - Systemic lupus erythematosus [Unknown]
  - Dialysis [Not Recovered/Not Resolved]
  - Product use issue [Not Recovered/Not Resolved]

NARRATIVE: CASE EVENT DATE: 20250428
